FAERS Safety Report 8875940 (Version 2)
Quarter: 2014Q2

REPORT INFORMATION
  Report Type: Report from Study
  Country: US (occurrence: US)
  Receive Date: 20121030
  Receipt Date: 20140428
  Transmission Date: 20141212
  Serious: Yes (Hospitalization)
  Sender: FDA-Public Use
  Company Number: PHHO2012US013881

PATIENT
  Age: 70 Year
  Sex: Male

DRUGS (47)
  1. DEXAMETHASONE [Suspect]
     Dosage: 20 MG, UNK
     Route: 042
     Dates: start: 20120306
  2. IRINOTECAN [Suspect]
     Indication: CHEMOTHERAPY
     Dosage: 271 MG, QW
     Route: 042
     Dates: start: 20120306
  3. 5-FLUOROURACIL [Suspect]
     Indication: CHEMOTHERAPY
     Dosage: UNK
     Dates: start: 20120306
  4. DIPHENHYDRAMINE [Suspect]
     Dosage: 25 MG, UNK
     Route: 042
     Dates: start: 20120306
  5. BLINDED BYM338 [Suspect]
     Indication: CACHEXIA
     Dosage: DOUBLE-BLIND
     Route: 042
     Dates: start: 20120613, end: 20120613
  6. BLINDED NO TREATMENT RECEIVED [Suspect]
     Indication: CACHEXIA
     Dosage: DOUBLE-BLIND
     Route: 042
     Dates: start: 20120613, end: 20120613
  7. BLINDED PLACEBO [Suspect]
     Indication: CACHEXIA
     Dosage: DOUBLE-BLIND
     Route: 042
     Dates: start: 20120613, end: 20120613
  8. LEUCOVORIN [Suspect]
     Indication: CHEMOTHERAPY
     Dosage: 60 MG, UNK
     Route: 042
     Dates: start: 20120306, end: 20120717
  9. FAMOTIDINE [Suspect]
     Indication: CHEMOTHERAPY
     Dosage: UNK
     Dates: start: 20120306
  10. ATROPINE [Suspect]
     Dosage: 0.4 MG, UNK
     Route: 042
     Dates: start: 20120306
  11. AMBIEN [Concomitant]
     Indication: INSOMNIA
     Dosage: 5 MG, QHS
     Route: 048
     Dates: start: 20120404
  12. ATIVAN [Concomitant]
     Indication: NAUSEA
     Dosage: 0.5 MG, Q4H
     Route: 048
     Dates: start: 20100813
  13. BACLOFEN [Concomitant]
     Indication: HICCUPS
     Dosage: 10 MG, QID
     Route: 048
     Dates: start: 20120424
  14. HYDROCHLOROTHIAZIDE [Concomitant]
     Dosage: 25 MG, QD
     Dates: start: 20120710
  15. COLACE [Concomitant]
     Indication: CONSTIPATION
     Dosage: 2 DF, QD
     Dates: start: 20120330, end: 20120821
  16. ENDOCET [Concomitant]
     Indication: ABDOMINAL PAIN
     Dosage: UNK
     Dates: start: 20120330
  17. IRON [Concomitant]
     Indication: ANAEMIA
     Dosage: 3250 MG, TID
     Route: 048
     Dates: start: 20110624, end: 20120821
  18. MIRALAX [Concomitant]
     Indication: CONSTIPATION
     Dosage: 7 G, PRN
     Route: 048
     Dates: start: 20120316, end: 20120821
  19. ONDANSETRON [Concomitant]
     Indication: NAUSEA
     Dosage: 8 MG, QD
     Route: 048
     Dates: start: 20120316, end: 20120821
  20. POTASSIUM CHLORIDE [Concomitant]
     Indication: HYPOKALAEMIA
     Dosage: 20 UG, BID
     Route: 048
     Dates: start: 20120417, end: 20120618
  21. PROCHLORPERAZINE [Concomitant]
     Indication: NAUSEA
     Dosage: 10 MG, Q4H
     Route: 048
     Dates: start: 20110715
  22. WARFARIN [Concomitant]
     Indication: DEEP VEIN THROMBOSIS
     Dosage: 1.5 MG, PRN
     Dates: start: 20100604, end: 20120518
  23. WARFARIN [Concomitant]
     Dosage: 1 MG, EVERY OTHER DAY
     Dates: start: 20120519, end: 20120603
  24. WARFARIN [Concomitant]
     Dosage: 1 MG, QD
     Dates: start: 20120604, end: 20120607
  25. WARFARIN [Concomitant]
     Dosage: UNK
     Dates: start: 20120702, end: 20120720
  26. K-PHOS [Concomitant]
     Indication: HYPOPHOSPHATAEMIA
     Dosage: 250 MG, BID
     Route: 048
     Dates: start: 20120612
  27. ANDROGEL [Concomitant]
     Indication: BLOOD TESTOSTERONE DECREASED
     Dosage: UNK
     Dates: start: 20120612, end: 20120612
  28. NEULASTA [Concomitant]
     Indication: PROPHYLAXIS
     Dosage: 6 MG, UNK
     Dates: start: 20120521, end: 20120521
  29. NEULASTA [Concomitant]
     Dosage: 6 MG, UNK
     Dates: start: 20120607, end: 20120607
  30. NEULASTA [Concomitant]
     Dosage: 6 MG, UNK
     Dates: start: 20120621, end: 20120621
  31. NEULASTA [Concomitant]
     Dosage: 6 MG, UNK
     Dates: start: 20120706, end: 20120706
  32. NEULASTA [Concomitant]
     Dosage: 3 MG, UNK
     Dates: start: 20120720, end: 20120720
  33. NEULASTA [Concomitant]
     Dosage: 6 MG, UNK
     Route: 042
     Dates: start: 20120731, end: 20120731
  34. KCL [Concomitant]
     Indication: HYPOKALAEMIA
     Dosage: 40 MEQ, UNK
     Route: 042
     Dates: start: 20120604, end: 20120604
  35. KCL [Concomitant]
     Dosage: 20 MEQ, TID
     Route: 048
     Dates: start: 20120619, end: 20120711
  36. KCL [Concomitant]
     Dosage: 40 MEQ, BID
     Route: 048
     Dates: start: 20120717, end: 20120717
  37. KCL [Concomitant]
     Dosage: 20 MEQ, UNK
     Dates: start: 20120731, end: 20120731
  38. KCL [Concomitant]
     Dosage: 40 MEQ, BID
     Dates: start: 20120720, end: 20120911
  39. NACL [Concomitant]
     Indication: PROPHYLAXIS
     Dosage: 500 ML, UNK
     Route: 042
     Dates: start: 20120604, end: 20120604
  40. NACL [Concomitant]
     Dosage: 250 ML, UNK
     Dates: start: 20120717, end: 20120717
  41. NACL [Concomitant]
     Dosage: 500 ML, UNK
     Route: 042
     Dates: start: 20120719, end: 20120719
  42. VITAMIN K [Concomitant]
     Dosage: 1 MG, UNK
     Dates: start: 20120720, end: 20120720
  43. TUMS [Concomitant]
     Indication: DYSPEPSIA
     Dosage: 2 DF, PRN
     Dates: start: 20120731, end: 20120806
  44. PEPCID [Concomitant]
     Indication: DYSPEPSIA
     Dosage: 2 DF, PRN
     Dates: start: 20120731
  45. LIDOCAINE [Concomitant]
     Dosage: UNK
     Dates: start: 20120813, end: 20120813
  46. CHLORPROMAZINE [Concomitant]
     Dosage: 10 MG, QID
     Route: 048
     Dates: start: 20120419, end: 20120821
  47. MEGACE [Concomitant]
     Dosage: 20 ML, UNK
     Route: 048
     Dates: start: 20120525, end: 20120525

REACTIONS (3)
  - Nausea [Recovered/Resolved]
  - Vomiting [Recovered/Resolved]
  - Oedema peripheral [Unknown]
